FAERS Safety Report 10430451 (Version 1)
Quarter: 2014Q3

REPORT INFORMATION
  Report Type: Spontaneous
  Country: US (occurrence: US)
  Receive Date: 20140904
  Receipt Date: 20140904
  Transmission Date: 20150326
  Serious: No
  Sender: FDA-Public Use
  Company Number: US-009507513-1409USA000526

PATIENT
  Sex: Female

DRUGS (3)
  1. LOTRIMIN ULTRA [Suspect]
     Active Substance: BUTENAFINE HYDROCHLORIDE
     Indication: RASH
     Dosage: UNK, UNKNOWN
     Route: 061
  2. LOTRIMIN ULTRA [Suspect]
     Active Substance: BUTENAFINE HYDROCHLORIDE
     Indication: PRURITUS
  3. LOTRIMIN ULTRA [Suspect]
     Active Substance: BUTENAFINE HYDROCHLORIDE
     Indication: ERYTHEMA

REACTIONS (3)
  - Condition aggravated [Unknown]
  - Drug prescribing error [Unknown]
  - Off label use [Not Recovered/Not Resolved]
